FAERS Safety Report 7919751-7 (Version None)
Quarter: 2011Q4

REPORT INFORMATION
  Report Type: 
  Country: None (occurrence: None)
  Receive Date: 20111117
  Receipt Date: 20111109
  Transmission Date: 20120403
  Serious: Yes (Other)
  Sender: FDA-Public Use
  Company Number: GB-ASTELLAS-2011EU001748

PATIENT
  Sex: Female
  Weight: 36 kg

DRUGS (9)
  1. TACROLIMUS [Suspect]
     Indication: DERMATITIS ATOPIC
     Dosage: 0.03 %, BID
     Route: 061
     Dates: start: 20040608
  2. OILATUM [Concomitant]
     Indication: DERMATITIS ATOPIC
     Dosage: UNK
     Route: 061
     Dates: start: 20090911
  3. DERMOL SOL [Concomitant]
     Indication: DERMATITIS ATOPIC
     Dosage: UNK
     Route: 061
     Dates: start: 20030625
  4. BETNOVATE [Concomitant]
     Indication: DERMATITIS ATOPIC
     Dosage: UNK
     Route: 061
     Dates: start: 20071123
  5. HYDROUS [Concomitant]
     Indication: DERMATITIS ATOPIC
     Dosage: UNK
     Route: 061
     Dates: start: 20040817
  6. HYDROCORTISONE [Concomitant]
     Indication: DERMATITIS ATOPIC
     Dosage: 0.1 %, PRN
     Route: 061
     Dates: start: 20040506
  7. TACROLIMUS [Suspect]
     Dosage: 0.1 %, BID
     Route: 061
     Dates: start: 20040608
  8. VISCOPASTE [Concomitant]
     Indication: DERMATITIS ATOPIC
     Dosage: UNK
     Route: 061
     Dates: start: 20040622
  9. 50/50 LIQUID PARAFFIN W/WHITE SOFT PARAFFIN [Concomitant]
     Indication: DERMATITIS ATOPIC
     Dosage: UNK
     Route: 061
     Dates: start: 20040622

REACTIONS (2)
  - LYMPHADENOPATHY [None]
  - OFF LABEL USE [None]
